FAERS Safety Report 18914850 (Version 2)
Quarter: 2021Q1

REPORT INFORMATION
  Report Type: Spontaneous
  Country: JP (occurrence: JP)
  Receive Date: 20210219
  Receipt Date: 20210315
  Transmission Date: 20210420
  Serious: Yes (Hospitalization, Other)
  Sender: FDA-Public Use
  Company Number: NVSJ2021JP002562

PATIENT
  Age: 63 Year
  Sex: Male

DRUGS (1)
  1. ENTRESTO [Suspect]
     Active Substance: SACUBITRIL\VALSARTAN
     Indication: CARDIAC FAILURE CHRONIC
     Dosage: 400 MG
     Route: 048
     Dates: start: 20200907

REACTIONS (4)
  - N-terminal prohormone brain natriuretic peptide increased [Not Recovered/Not Resolved]
  - Concomitant disease aggravated [Unknown]
  - Bile duct cancer [Unknown]
  - Mitral valve incompetence [Unknown]
